FAERS Safety Report 9426833 (Version 1)
Quarter: 2013Q3

REPORT INFORMATION
  Report Type: Spontaneous
  Country: US (occurrence: None)
  Receive Date: 20130729
  Receipt Date: 20130729
  Transmission Date: 20140515
  Serious: Yes (Other)
  Sender: FDA-Public Use
  Company Number: None

PATIENT
  Age: 54 Year
  Sex: Female
  Weight: 57.61 kg

DRUGS (6)
  1. TASIGNA [Suspect]
     Indication: CHRONIC MYELOID LEUKAEMIA
     Route: 048
     Dates: start: 20130621
  2. OPANA ER 30MG [Concomitant]
  3. OPANA IR 10MG [Concomitant]
  4. RITALIN 5MG [Concomitant]
  5. LASIX 20MG [Concomitant]
  6. ATIVAN 1MG [Concomitant]

REACTIONS (2)
  - Oral discomfort [None]
  - Glossodynia [None]
